FAERS Safety Report 8156161-4 (Version None)
Quarter: 2012Q1

REPORT INFORMATION
  Report Type: 
  Country: None (occurrence: None)
  Receive Date: 20120216
  Receipt Date: 20120209
  Transmission Date: 20120608
  Serious: Yes (Hospitalization)
  Sender: FDA-Public Use
  Company Number: 1189871

PATIENT
  Age: 64 Year
  Sex: Male

DRUGS (4)
  1. IRINOTECAN HCL [Suspect]
     Indication: COLON CANCER
     Dosage: 125 MG/M^2 BIMONTHLY, UNKNOWN, UNKNOWN
  2. (BEVACIZUMAB) [Suspect]
     Indication: COLON CANCER
     Dosage: 5 MG/KG BIMONTHLY, UNKNOWN, UNKNOWN
  3. FLUOROURACIL [Suspect]
     Indication: COLON CANCER
     Dosage: 400 MG/M^2 BIMONTHLY (UNKNOWN), 600 MG/M^2 BIMONTHLY (UNKNOWN)
     Route: 041
  4. LEUCOVORIN CALCIUM [Suspect]
     Indication: COLON CANCER
     Dosage: 200 MG/M^2 BIMONTHLY, INTRAVENOUS BOLUS
     Route: 040

REACTIONS (6)
  - COLON CANCER [None]
  - NEOPLASM PROGRESSION [None]
  - CONVULSION [None]
  - LOSS OF CONSCIOUSNESS [None]
  - REFUSAL OF TREATMENT BY PATIENT [None]
  - INTRACRANIAL VENOUS SINUS THROMBOSIS [None]
